FAERS Safety Report 25350250 (Version 2)
Quarter: 2025Q3

REPORT INFORMATION
  Report Type: Spontaneous
  Country: US (occurrence: US)
  Receive Date: 20250523
  Receipt Date: 20250711
  Transmission Date: 20251020
  Serious: No
  Sender: GLAXOSMITHKLINE
  Company Number: US-GSK-US2025AMR062510

PATIENT
  Sex: Female

DRUGS (3)
  1. NUCALA [Suspect]
     Active Substance: MEPOLIZUMAB
     Indication: Chronic sinusitis
     Dosage: 100 MG, Q4W
     Dates: start: 202502
  2. NUCALA [Suspect]
     Active Substance: MEPOLIZUMAB
     Indication: Rhinitis
  3. BUDESONIDE [Concomitant]
     Active Substance: BUDESONIDE
     Indication: Product used for unknown indication

REACTIONS (3)
  - Sinusitis [Recovering/Resolving]
  - Condition aggravated [Recovering/Resolving]
  - Endodontic procedure [Recovering/Resolving]
